FAERS Safety Report 20956662 (Version 8)
Quarter: 2023Q1

REPORT INFORMATION
  Report Type: Spontaneous
  Country: RU (occurrence: RU)
  Receive Date: 20220614
  Receipt Date: 20230130
  Transmission Date: 20230417
  Serious: Yes (Death, Life-Threatening, Hospitalization, Other)
  Sender: FDA-Public Use
  Company Number: RU-NOVARTISPH-NVSC2022RU133126

PATIENT
  Sex: Female
  Weight: 10.2 kg

DRUGS (8)
  1. ZOLGENSMA [Suspect]
     Active Substance: ONASEMNOGENE ABEPARVOVEC-XIOI
     Indication: Spinal muscular atrophy
     Dosage: 55.5 ML
     Route: 042
     Dates: start: 20220429
  2. PREDNISOLONE [Concomitant]
     Active Substance: PREDNISOLONE
     Indication: Immunosuppression
     Dosage: 1 MG/KG, QD
     Route: 065
     Dates: start: 20220426
  3. PREDNISOLONE [Concomitant]
     Active Substance: PREDNISOLONE
     Dosage: 2 MG/KG, QD
     Route: 065
     Dates: start: 20220518
  4. PREDNISOLONE [Concomitant]
     Active Substance: PREDNISOLONE
     Dosage: 1 MG/KG, QD
     Route: 065
  5. PREDNISOLONE [Concomitant]
     Active Substance: PREDNISOLONE
     Dosage: 30 MG/KG, QD
     Route: 065
     Dates: start: 20220607
  6. PREDNISOLONE [Concomitant]
     Active Substance: PREDNISOLONE
     Dosage: UNK
     Route: 048
     Dates: start: 20220428, end: 20220607
  7. PREDNISONE [Concomitant]
     Active Substance: PREDNISONE
     Indication: Product used for unknown indication
     Dosage: 1 MG/KG, QD
     Route: 065
     Dates: start: 20220512
  8. CHOLECALCIFEROL [Concomitant]
     Active Substance: CHOLECALCIFEROL
     Indication: Vitamin supplementation
     Dosage: UNK
     Route: 048
     Dates: start: 20220428, end: 20220607

REACTIONS (27)
  - Drug-induced liver injury [Fatal]
  - Sepsis [Fatal]
  - Disease progression [Fatal]
  - Viral infection [Fatal]
  - Bacterial infection [Fatal]
  - Hepatitis [Fatal]
  - Acute hepatic failure [Fatal]
  - Transaminases increased [Fatal]
  - Ocular icterus [Fatal]
  - Asthenia [Fatal]
  - Lethargy [Fatal]
  - Vomiting [Fatal]
  - Jaundice [Fatal]
  - Diarrhoea [Fatal]
  - Dyspnoea [Unknown]
  - Multiple organ dysfunction syndrome [Unknown]
  - Clostridial infection [Unknown]
  - Thymus hypoplasia [Unknown]
  - Prosopagnosia [Unknown]
  - Irritability [Unknown]
  - Hypofibrinogenaemia [Unknown]
  - Agitation [Unknown]
  - Epstein-Barr virus test positive [Unknown]
  - Hypocoagulable state [Unknown]
  - Aspartate aminotransferase increased [Unknown]
  - Liver function test abnormal [Unknown]
  - Spleen disorder [Unknown]

NARRATIVE: CASE EVENT DATE: 20220602
